FAERS Safety Report 5622528-9 (Version None)
Quarter: 2008Q1

REPORT INFORMATION
  Report Type: 
  Country: None (occurrence: None)
  Receive Date: 20080211
  Receipt Date: 20080206
  Transmission Date: 20080703
  Serious: Yes (Hospitalization)
  Sender: FDA-Public Use
  Company Number: SE-PFIZER INC-2008012085

PATIENT
  Sex: Female

DRUGS (3)
  1. SALAZOPYRIN [Suspect]
     Indication: RHEUMATOID ARTHRITIS
     Route: 048
     Dates: start: 20070919, end: 20071121
  2. FOLIC ACID [Concomitant]
  3. ASPIRIN [Concomitant]

REACTIONS (1)
  - LUNG INFILTRATION [None]
